FAERS Safety Report 5871564-6 (Version None)
Quarter: 2008Q3

REPORT INFORMATION
  Report Type: 
  Country: None (occurrence: None)
  Receive Date: 20080905
  Receipt Date: 20080513
  Transmission Date: 20090109
  Serious: No
  Sender: FDA-Public Use
  Company Number: A0726590A

PATIENT
  Sex: Female

DRUGS (8)
  1. REQUIP [Suspect]
     Indication: RESTLESS LEGS SYNDROME
     Route: 048
  2. ASPIRIN [Concomitant]
  3. NORMODYNE [Concomitant]
  4. DILANTIN [Concomitant]
  5. DUONEB [Concomitant]
  6. PULMICORT-100 [Concomitant]
  7. BONIVA [Concomitant]
  8. CILOSTAZOL [Concomitant]

REACTIONS (1)
  - NAUSEA [None]
